FAERS Safety Report 10958707 (Version 1)
Quarter: 2015Q1

REPORT INFORMATION
  Report Type: Spontaneous
  Country: US (occurrence: US)
  Receive Date: 20150326
  Receipt Date: 20150326
  Transmission Date: 20150721
  Serious: Yes (Death, Hospitalization)
  Sender: FDA-Public Use
  Company Number: US-TEVA-521032USA

PATIENT
  Sex: Male

DRUGS (1)
  1. CIPROFLOXACIN. [Suspect]
     Active Substance: CIPROFLOXACIN
     Route: 065

REACTIONS (6)
  - Rash erythematous [Unknown]
  - Blister [Unknown]
  - Blood disorder [Unknown]
  - Death [Fatal]
  - Blood blister [Unknown]
  - Adverse event [Unknown]
